FAERS Safety Report 22229558 (Version 2)
Quarter: 2023Q2

REPORT INFORMATION
  Report Type: Spontaneous
  Country: US (occurrence: US)
  Receive Date: 20230419
  Receipt Date: 20230630
  Transmission Date: 20230722
  Serious: No
  Sender: FDA-Public Use
  Company Number: US-PFIZER INC-202300161719

PATIENT
  Age: 75 Year
  Sex: Female
  Weight: 83.01 kg

DRUGS (2)
  1. IBRANCE [Suspect]
     Active Substance: PALBOCICLIB
     Indication: Breast cancer metastatic
     Dosage: 125 MG, 1X/DAY
     Route: 048
     Dates: start: 20221209
  2. IBRANCE [Suspect]
     Active Substance: PALBOCICLIB
     Dosage: 100MG ONCE A DAY FOR 21 DAYS AND OFF FOR SEVEN DAYS
     Route: 048
     Dates: start: 20221212

REACTIONS (4)
  - Nasal discharge discolouration [Not Recovered/Not Resolved]
  - Epistaxis [Not Recovered/Not Resolved]
  - Cough [Recovered/Resolved]
  - White blood cell count decreased [Unknown]

NARRATIVE: CASE EVENT DATE: 20221201
